FAERS Safety Report 5124470-9 (Version None)
Quarter: 2006Q4

REPORT INFORMATION
  Report Type: 
  Country: None (occurrence: None)
  Receive Date: 20061006
  Receipt Date: 20061002
  Transmission Date: 20070319
  Serious: Yes (Other)
  Sender: FDA-Public Use
  Company Number: B0440816A

PATIENT
  Age: 18 Year
  Sex: Male
  Weight: 79.8331 kg

DRUGS (1)
  1. LAMICTAL [Suspect]
     Indication: EPILEPSY
     Dates: start: 20030201

REACTIONS (7)
  - ALOPECIA [None]
  - ASTHENIA [None]
  - DISTURBANCE IN ATTENTION [None]
  - HEADACHE [None]
  - MEMORY IMPAIRMENT [None]
  - SOMNOLENCE [None]
  - VISUAL ACUITY REDUCED [None]
